FAERS Safety Report 7235604-4 (Version None)
Quarter: 2011Q1

REPORT INFORMATION
  Report Type: 
  Country: None (occurrence: None)
  Receive Date: 20110120
  Receipt Date: 20110117
  Transmission Date: 20110831
  Serious: Yes (Death, Hospitalization)
  Sender: FDA-Public Use
  Company Number: PHFR2010IE02305

PATIENT
  Sex: Male

DRUGS (12)
  1. LAMOTRIGINE [Concomitant]
     Dosage: 200 MG, NOCTE
  2. LACTULOSE [Concomitant]
     Dosage: 10 ML, TID
  3. CALCICHEW D3 [Concomitant]
     Dosage: 1 DF, BID
  4. MIDODRINE HYDROCHLORIDE [Concomitant]
     Dosage: 10 MG, TID
  5. DIGOXIN [Concomitant]
     Dosage: 0.125 MG, QD
  6. RISPERIDONE [Concomitant]
     Dosage: 2 MG, QD
  7. LANSOPRAZOLE [Concomitant]
     Dosage: 30 MG, QD
  8. ALENDRONATE SODIUM [Concomitant]
     Dosage: 70 MG, QW
  9. CALOGEN                                 /IRE/ [Concomitant]
     Dosage: 30 MG, TID
  10. CLOZARIL [Suspect]
     Dosage: 100 MG MANE AND 200 MG NOCTE
     Route: 048
     Dates: start: 20080926
  11. ASPIRIN [Concomitant]
     Dosage: 150 MG, MANE
  12. SERTRALINE [Concomitant]
     Dosage: 200 MG, MANE

REACTIONS (10)
  - CIRCULATORY COLLAPSE [None]
  - GENERAL PHYSICAL HEALTH DETERIORATION [None]
  - CARDIAC ARREST [None]
  - TACHYCARDIA [None]
  - PNEUMONIA [None]
  - DYSPNOEA [None]
  - COUGH [None]
  - PYREXIA [None]
  - MALAISE [None]
  - URINARY TRACT INFECTION [None]
